FAERS Safety Report 12275207 (Version 1)
Quarter: 2016Q2

REPORT INFORMATION
  Report Type: Spontaneous
  Country: US (occurrence: US)
  Receive Date: 20160415
  Receipt Date: 20160415
  Transmission Date: 20160815
  Serious: No
  Sender: FDA-Public Use
  Company Number: US-ALLERGAN-1600494US

PATIENT
  Age: 56 Year
  Sex: Female
  Weight: 28.12 kg

DRUGS (1)
  1. LATISSE [Suspect]
     Active Substance: BIMATOPROST
     Indication: GROWTH OF EYELASHES
     Dosage: UNK, QHS
     Route: 061
     Dates: start: 2015

REACTIONS (12)
  - Conjunctivitis [Recovered/Resolved]
  - Eye pain [Recovered/Resolved]
  - Lacrimation increased [Recovered/Resolved]
  - Eye pruritus [Recovered/Resolved]
  - Eye irritation [Recovered/Resolved]
  - Eye irritation [Recovered/Resolved]
  - Inappropriate schedule of drug administration [Unknown]
  - Sneezing [Recovered/Resolved]
  - Eye swelling [Recovered/Resolved]
  - Eye discharge [Recovered/Resolved]
  - Wrong technique in product usage process [Unknown]
  - Nasopharyngitis [Recovered/Resolved]

NARRATIVE: CASE EVENT DATE: 201512
